FAERS Safety Report 10066702 (Version 1)
Quarter: 2014Q2

REPORT INFORMATION
  Report Type: Spontaneous
  Country: US (occurrence: None)
  Receive Date: 20140401
  Receipt Date: 20140401
  Transmission Date: 20141212
  Serious: Yes (Other)
  Sender: FDA-Public Use
  Company Number: PHEH2013US024440

PATIENT
  Age: 66 Year
  Sex: Female

DRUGS (2)
  1. EXELON PATCH (RIVASTIGMINE) TRANS-THERAPEUTIC-SYSTEM [Suspect]
     Indication: PARKINSON^S DISEASE
     Route: 062
  2. CARBIDOPA LEVODOPA (CARBIDOPA, LEVODOPA) [Concomitant]

REACTIONS (3)
  - Hallucination [None]
  - Malaise [None]
  - Nausea [None]
